FAERS Safety Report 25957951 (Version 1)
Quarter: 2025Q4

REPORT INFORMATION
  Report Type: Spontaneous
  Country: US (occurrence: US)
  Receive Date: 20251024
  Receipt Date: 20251024
  Transmission Date: 20260117
  Serious: Yes (Other)
  Sender: BAUSCH AND LOMB
  Company Number: US-BAUSCHBL-2025BNL030378

PATIENT
  Sex: Female

DRUGS (1)
  1. XIIDRA [Suspect]
     Active Substance: LIFITEGRAST
     Indication: Dry eye
     Route: 047

REACTIONS (5)
  - Blindness [Unknown]
  - Visual impairment [Unknown]
  - Patient dissatisfaction with treatment [Unknown]
  - Product expiration date issue [Unknown]
  - Expired product administered [Unknown]
